FAERS Safety Report 7121879-9 (Version None)
Quarter: 2010Q4

REPORT INFORMATION
  Report Type: 
  Country: None (occurrence: None)
  Receive Date: 20101124
  Receipt Date: 20101116
  Transmission Date: 20110411
  Serious: Yes (Hospitalization)
  Sender: FDA-Public Use
  Company Number: HR-ROCHE-742834

PATIENT
  Sex: Male
  Weight: 78 kg

DRUGS (2)
  1. CAPECITABINE [Suspect]
     Dosage: 5TH CYCLE OF THERAPY
     Route: 065
  2. BEVACIZUMAB [Suspect]
     Dosage: 5TH CYCLE OF THERAPY
     Route: 065

REACTIONS (1)
  - LARGE INTESTINE PERFORATION [None]
